FAERS Safety Report 4457975-4 (Version None)
Quarter: 2004Q3

REPORT INFORMATION
  Report Type: 
  Country: None (occurrence: None)
  Receive Date: 20040917
  Receipt Date: 20040512
  Transmission Date: 20050211
  Serious: Yes (Other)
  Sender: FDA-Public Use
  Company Number: US-JNJFOC-20040503220

PATIENT
  Age: 40 Year
  Sex: Female
  Weight: 61.6892 kg

DRUGS (6)
  1. TOPAMAX [Suspect]
     Indication: WEIGHT LOSS POOR
     Dosage: 300 MG, IN 1 DAY
  2. TRILEPTOL (OSCARBAZEPINE) [Concomitant]
  3. WELLBUTRIN [Concomitant]
  4. DURAGESIC [Concomitant]
  5. PREDNISONE [Concomitant]
  6. PLAQUENIL [Concomitant]

REACTIONS (3)
  - ANXIETY [None]
  - DECREASED APPETITE [None]
  - WEIGHT DECREASED [None]
